FAERS Safety Report 19711447 (Version 1)
Quarter: 2021Q3

REPORT INFORMATION
  Report Type: Report from Study
  Country: US (occurrence: US)
  Receive Date: 20210817
  Receipt Date: 20210817
  Transmission Date: 20211014
  Serious: Yes (Hospitalization)
  Sender: FDA-Public Use
  Company Number: US-EISAI MEDICAL RESEARCH-EC-2021-097744

PATIENT
  Age: 63 Year
  Sex: Female

DRUGS (2)
  1. LENVIMA [Suspect]
     Active Substance: LENVATINIB
     Indication: THYROID CANCER
     Route: 048
     Dates: start: 20210506, end: 2021
  2. LENVIMA [Suspect]
     Active Substance: LENVATINIB
     Route: 048
     Dates: start: 2021

REACTIONS (4)
  - Blood potassium decreased [Unknown]
  - Impaired healing [Unknown]
  - Stoma site haemorrhage [Unknown]
  - Stoma site extravasation [Unknown]

NARRATIVE: CASE EVENT DATE: 2021
